FAERS Safety Report 10414885 (Version 1)
Quarter: 2014Q3

REPORT INFORMATION
  Report Type: Spontaneous
  Country: US (occurrence: US)
  Receive Date: 20140828
  Receipt Date: 20140828
  Transmission Date: 20150326
  Serious: Yes (Hospitalization)
  Sender: FDA-Public Use
  Company Number: US-UNITED THERAPEUTICS-UNT-2014-006068

PATIENT
  Age: 59 Year
  Sex: Female
  Weight: 104.31 kg

DRUGS (2)
  1. TRACLEER [Concomitant]
     Active Substance: BOSENTAN\BOSENTAN MONOHYDRATE
     Indication: PRODUCT USED FOR UNKNOWN INDICATION
  2. REMODULIN [Suspect]
     Active Substance: TREPROSTINIL
     Indication: PULMONARY ARTERIAL HYPERTENSION
     Dosage: 40ML/24 HRS, UNK
     Route: 041
     Dates: start: 20100703

REACTIONS (3)
  - Malaise [Unknown]
  - Prothrombin time prolonged [Unknown]
  - Somnolence [Unknown]

NARRATIVE: CASE EVENT DATE: 20140814
